FAERS Safety Report 18546302 (Version 7)
Quarter: 2021Q2

REPORT INFORMATION
  Report Type: Spontaneous
  Country: US (occurrence: US)
  Receive Date: 20201125
  Receipt Date: 20210408
  Transmission Date: 20210717
  Serious: Yes (Other)
  Sender: FDA-Public Use
  Company Number: US-PFIZER INC-2020463805

PATIENT
  Age: 62 Year
  Sex: Female
  Weight: 78.46 kg

DRUGS (3)
  1. IBRANCE [Suspect]
     Active Substance: PALBOCICLIB
     Dosage: 125 MG
     Dates: start: 20201118
  2. FASLODEX [Suspect]
     Active Substance: FULVESTRANT
     Dosage: UNK
     Dates: start: 20201120
  3. IBRANCE [Suspect]
     Active Substance: PALBOCICLIB
     Dosage: 125 MG
     Dates: start: 20210326

REACTIONS (6)
  - Lacrimation increased [Unknown]
  - Neutrophil count decreased [Unknown]
  - Eye discharge [Unknown]
  - Constipation [Unknown]
  - Hot flush [Recovering/Resolving]
  - Fatigue [Unknown]
